FAERS Safety Report 19537944 (Version 1)
Quarter: 2021Q3

REPORT INFORMATION
  Report Type: Spontaneous
  Country: US (occurrence: US)
  Receive Date: 20210714
  Receipt Date: 20210714
  Transmission Date: 20211014
  Serious: Yes (Other)
  Sender: FDA-Public Use
  Company Number: US-TEVA-2021-US-1930907

PATIENT
  Sex: Female

DRUGS (1)
  1. QVAR REDIHALER [Suspect]
     Active Substance: BECLOMETHASONE DIPROPIONATE
     Indication: PRODUCT USED FOR UNKNOWN INDICATION
     Dosage: START DATE: 22 YEARS AGO, DOSE: 80 MCG 2 PUFFS TWICE DAILY
     Route: 065

REACTIONS (2)
  - Osteoporosis [Unknown]
  - Osteoporotic fracture [Unknown]
